FAERS Safety Report 5778299-9 (Version None)
Quarter: 2008Q2

REPORT INFORMATION
  Report Type: 
  Country: None (occurrence: None)
  Receive Date: 20080619
  Receipt Date: 20080421
  Transmission Date: 20081010
  Serious: No
  Sender: FDA-Public Use
  Company Number: US-BAYER-200811886BCC

PATIENT
  Age: 81 Year
  Sex: Male
  Weight: 109 kg

DRUGS (9)
  1. ALEVE [Suspect]
     Indication: ABDOMINAL DISTENSION
     Dosage: TOTAL DAILY DOSE: 220 MG  UNIT DOSE: 220 MG
     Route: 048
     Dates: start: 20080419
  2. VYTORIN [Concomitant]
  3. DARVOCET [Concomitant]
  4. AVAPRO [Concomitant]
  5. FOLMAX [Concomitant]
  6. METHOTREXATE [Concomitant]
  7. SYNTHROID [Concomitant]
  8. FOLIC ACID [Concomitant]
  9. ANXIETY [Concomitant]

REACTIONS (1)
  - ABDOMINAL PAIN UPPER [None]
